FAERS Safety Report 15724969 (Version 1)
Quarter: 2018Q4

REPORT INFORMATION
  Report Type: Report from Study
  Country: US (occurrence: US)
  Receive Date: 20181214
  Receipt Date: 20181214
  Transmission Date: 20190205
  Serious: Yes (Hospitalization)
  Sender: FDA-Public Use
  Company Number: US-ACTELION-A-NJ2017-156474

PATIENT
  Age: 76 Year
  Sex: Female
  Weight: 68.27 kg

DRUGS (8)
  1. OPSUMIT [Suspect]
     Active Substance: MACITENTAN
     Indication: PULMONARY ARTERIAL HYPERTENSION
     Dosage: 10 MG, QD
     Route: 048
     Dates: start: 20171226
  2. MAGNESIUM OXIDE. [Concomitant]
     Active Substance: MAGNESIUM OXIDE
  3. VELETRI [Concomitant]
     Active Substance: EPOPROSTENOL
     Indication: PULMONARY ARTERIAL HYPERTENSION
     Dosage: UNK
     Dates: start: 201811
  4. WARFARIN [Concomitant]
     Active Substance: WARFARIN
  5. AMLODIPINE [Concomitant]
     Active Substance: AMLODIPINE BESYLATE
  6. VENTAVIS [Suspect]
     Active Substance: ILOPROST
     Indication: PULMONARY ARTERIAL HYPERTENSION
     Dosage: 5 MCG, 6-9 X/DAY
     Route: 055
  7. UPTRAVI [Suspect]
     Active Substance: SELEXIPAG
     Indication: PULMONARY ARTERIAL HYPERTENSION
     Dosage: 200 MCG, BID
     Route: 048
  8. UPTRAVI [Suspect]
     Active Substance: SELEXIPAG
     Dosage: UNK
     Route: 048
     Dates: start: 20170623, end: 20170705

REACTIONS (10)
  - Insomnia [Unknown]
  - Gastric disorder [Unknown]
  - Nausea [Unknown]
  - Headache [Unknown]
  - Pulmonary arterial hypertension [Unknown]
  - Hospitalisation [Unknown]
  - Product intolerance [Unknown]
  - Vomiting [Unknown]
  - Malaise [Unknown]
  - Disease progression [Unknown]
